FAERS Safety Report 7504839-5 (Version None)
Quarter: 2011Q2

REPORT INFORMATION
  Report Type: 
  Country: None (occurrence: None)
  Receive Date: 20110525
  Receipt Date: 20110517
  Transmission Date: 20111010
  Serious: Yes (Death)
  Sender: FDA-Public Use
  Company Number: DE-CELGENEUS-CA033-11-0121

PATIENT
  Age: 74 Year
  Sex: Male
  Weight: 64 kg

DRUGS (7)
  1. MORPHINE [Concomitant]
     Indication: PAIN
     Route: 048
  2. NOVALGIN [Concomitant]
     Indication: PAIN
     Route: 048
  3. MOVIPREP [Concomitant]
     Route: 048
  4. CALCIUM CARBONATE [Concomitant]
     Route: 048
  5. AMITRIPTYLINE HCL [Concomitant]
     Route: 048
  6. ABRAXANE [Suspect]
     Indication: METASTATIC MALIGNANT MELANOMA
     Route: 065
     Dates: start: 20101220
  7. LACTULOSE [Concomitant]
     Route: 065

REACTIONS (1)
  - ILEUS [None]
